FAERS Safety Report 21738665 (Version 1)
Quarter: 2022Q4

REPORT INFORMATION
  Report Type: Spontaneous
  Country: US (occurrence: US)
  Receive Date: 20221216
  Receipt Date: 20221216
  Transmission Date: 20230112
  Serious: No
  Sender: FDA-Public Use
  Company Number: US-ENDO PHARMACEUTICALS INC-2021-014027

PATIENT
  Sex: Male

DRUGS (4)
  1. XIAFLEX [Suspect]
     Active Substance: COLLAGENASE CLOSTRIDIUM HISTOLYTICUM
     Indication: Peyronie^s disease
     Dosage: 0.58 MG, UNKNOWN (CYCLE ONE, INJECTION ONE)
     Route: 065
     Dates: start: 20211006
  2. XIAFLEX [Suspect]
     Active Substance: COLLAGENASE CLOSTRIDIUM HISTOLYTICUM
     Dosage: 0.58 MG, UNKNOWN (CYCLE ONE, INJECTION TWO)
     Route: 065
     Dates: start: 2021
  3. XIAFLEX [Suspect]
     Active Substance: COLLAGENASE CLOSTRIDIUM HISTOLYTICUM
     Dosage: 0.58 MG, UNKNOWN (CYCLE TWO, INJECTION ONE)
     Route: 065
     Dates: start: 2021
  4. XIAFLEX [Suspect]
     Active Substance: COLLAGENASE CLOSTRIDIUM HISTOLYTICUM
     Dosage: 0.58 MG, UNKNOWN (CYCLE TWO, INJECTION TWO)
     Route: 065
     Dates: start: 20211229

REACTIONS (5)
  - Pain [Unknown]
  - Swelling [Unknown]
  - Arthralgia [Not Recovered/Not Resolved]
  - Injection site discolouration [Unknown]
  - Contusion [Unknown]

NARRATIVE: CASE EVENT DATE: 20210101
